FAERS Safety Report 5900198-X (Version None)
Quarter: 2008Q3

REPORT INFORMATION
  Report Type: 
  Country: None (occurrence: None)
  Receive Date: 20080926
  Receipt Date: 20080925
  Transmission Date: 20090109
  Serious: Yes (Death)
  Sender: FDA-Public Use
  Company Number: GR-BRISTOL-MYERS SQUIBB COMPANY-14346647

PATIENT
  Age: 62 Year
  Sex: Female

DRUGS (5)
  1. ORENCIA [Suspect]
     Indication: POLYARTHRITIS
     Dosage: LAST DOSE WAS RECEIVED TWO MONTHS AGO
  2. NEORAL [Concomitant]
  3. REMICADE [Concomitant]
  4. ARAVA [Concomitant]
  5. ENDOXAN [Concomitant]

REACTIONS (1)
  - DEATH [None]
